FAERS Safety Report 8437519-2 (Version None)
Quarter: 2012Q2

REPORT INFORMATION
  Report Type: 
  Country: None (occurrence: None)
  Receive Date: 20120614
  Receipt Date: 20120418
  Transmission Date: 20120825
  Serious: No
  Sender: FDA-Public Use
  Company Number: US-AMGEN-USASP2012024398

PATIENT
  Age: 77 Year
  Sex: Female

DRUGS (1)
  1. PROLIA [Suspect]
     Indication: OSTEOPOROSIS POSTMENOPAUSAL
     Dosage: 60 MG, Q6MO
     Dates: start: 20111103

REACTIONS (6)
  - DRY SKIN [None]
  - PRURITUS [None]
  - INSOMNIA [None]
  - SINUS DISORDER [None]
  - NASAL DRYNESS [None]
  - RASH [None]
